FAERS Safety Report 16626213 (Version 2)
Quarter: 2019Q3

REPORT INFORMATION
  Report Type: Spontaneous
  Country: IT (occurrence: IT)
  Receive Date: 20190724
  Receipt Date: 20190805
  Transmission Date: 20191004
  Serious: Yes (Hospitalization)
  Sender: FDA-Public Use
  Company Number: PHHY2019IT168865

PATIENT
  Age: 56 Year
  Sex: Male

DRUGS (2)
  1. IBRUTINIB [Interacting]
     Active Substance: IBRUTINIB
     Indication: B-CELL LYMPHOMA
     Route: 048
  2. AMIODARONE [Suspect]
     Active Substance: AMIODARONE
     Indication: ATRIAL FLUTTER
     Dosage: 1200 MG, UNK
     Route: 041

REACTIONS (5)
  - Systolic dysfunction [Recovering/Resolving]
  - Atrial flutter [Unknown]
  - Ejection fraction decreased [Recovering/Resolving]
  - Drug interaction [Unknown]
  - Cardiac failure [Recovering/Resolving]
